FAERS Safety Report 7176643-1 (Version None)
Quarter: 2010Q4

REPORT INFORMATION
  Report Type: 
  Country: None (occurrence: None)
  Receive Date: 20101220
  Receipt Date: 20101215
  Transmission Date: 20110411
  Serious: Yes (Death, Hospitalization, Other)
  Sender: FDA-Public Use
  Company Number: PHHY2010BR85400

PATIENT
  Sex: Male

DRUGS (6)
  1. EXELON [Suspect]
     Indication: CARDIOVASCULAR DISORDER
     Dosage: 9MG/5CM2, 1 PATCH DAILY
     Route: 062
     Dates: start: 20101001
  2. SERETIDE [Concomitant]
     Indication: EMPHYSEMA
     Dosage: 1 INHALATION DAILY
  3. SPIRIVA [Concomitant]
     Indication: EMPHYSEMA
     Dosage: 1 INHALATION DAILY
  4. AMARYL [Concomitant]
     Indication: DIABETES MELLITUS
     Dosage: 1 TABLET 2 TIMES DAILY
     Route: 048
  5. INSULINA NPH [Concomitant]
     Indication: DIABETES MELLITUS
     Dosage: 12 UNITS
     Route: 058
     Dates: end: 20101001
  6. INSULINA R [Concomitant]
     Indication: DIABETES MELLITUS

REACTIONS (6)
  - BALANCE DISORDER [None]
  - BLOOD PRESSURE INCREASED [None]
  - CONVULSION [None]
  - DIABETIC COMPLICATION [None]
  - MUSCULAR WEAKNESS [None]
  - SYNCOPE [None]
